FAERS Safety Report 6666377-1 (Version None)
Quarter: 2010Q2

REPORT INFORMATION
  Report Type: 
  Country: None (occurrence: None)
  Receive Date: 20100402
  Receipt Date: 20100331
  Transmission Date: 20101027
  Serious: Yes (Death, Congenital Anomaly)
  Sender: FDA-Public Use
  Company Number: GB-EISAI INC.-E2090-01126-SOL-GB

PATIENT

DRUGS (4)
  1. ZONISAMIDE [Suspect]
  2. CLOBAZAM [Suspect]
     Dosage: UNKNOWN
  3. LAMOTRIGINE [Suspect]
     Dosage: UNKNOWN
  4. VALPROIC ACID [Suspect]
     Dosage: UNKNOWN

REACTIONS (3)
  - DRUG EXPOSURE DURING PREGNANCY [None]
  - SPINA BIFIDA [None]
  - STILLBIRTH [None]
